FAERS Safety Report 9745300 (Version 2)
Quarter: 2013Q4

REPORT INFORMATION
  Report Type: Report from Study
  Country: GB (occurrence: GB)
  Receive Date: 20131211
  Receipt Date: 20131211
  Transmission Date: 20140711
  Serious: Yes (Other)
  Sender: FDA-Public Use
  Company Number: GB-JNJFOC-20130810869

PATIENT
  Age: 27 Year
  Sex: Female
  Weight: 89.8 kg

DRUGS (6)
  1. SIMPONI [Suspect]
     Indication: PSORIATIC ARTHROPATHY
     Route: 058
     Dates: start: 20130817
  2. SIMPONI [Suspect]
     Indication: PSORIATIC ARTHROPATHY
     Route: 058
     Dates: start: 201302
  3. SIMPONI [Suspect]
     Indication: PSORIATIC ARTHROPATHY
     Route: 058
     Dates: start: 2013
  4. PREDNISOLONE [Concomitant]
     Route: 065
     Dates: start: 20130805
  5. HYDROXYCHLOROQUINE [Concomitant]
     Route: 065
     Dates: start: 20130917
  6. OMEPRAZOLE [Concomitant]
     Route: 065
     Dates: start: 20130619

REACTIONS (1)
  - Otitis externa [Recovered/Resolved]
